FAERS Safety Report 9478950 (Version 1)
Quarter: 2013Q3

REPORT INFORMATION
  Report Type: Spontaneous
  Country: US (occurrence: US)
  Receive Date: 20130827
  Receipt Date: 20130827
  Transmission Date: 20140515
  Serious: Yes (Other)
  Sender: FDA-Public Use
  Company Number: US-ABBOTT-13P-163-1135275-00

PATIENT
  Sex: 0

DRUGS (1)
  1. DEPAKOTE [Suspect]
     Indication: PRODUCT USED FOR UNKNOWN INDICATION

REACTIONS (7)
  - Convulsion [Recovered/Resolved]
  - Depression [Unknown]
  - Weight increased [Recovered/Resolved]
  - Hypophagia [Unknown]
  - Hair texture abnormal [Unknown]
  - Weight increased [Unknown]
  - Feeling abnormal [Unknown]
